FAERS Safety Report 6192649-3 (Version None)
Quarter: 2009Q2

REPORT INFORMATION
  Report Type: 
  Country: None (occurrence: None)
  Receive Date: 20090514
  Receipt Date: 20090514
  Transmission Date: 20091009
  Serious: Yes (Hospitalization)
  Sender: FDA-Public Use
  Company Number: None

PATIENT
  Sex: Male
  Weight: 118.5 kg

DRUGS (3)
  1. CYTARABINE [Suspect]
     Dosage: 243 MG
     Dates: end: 20090422
  2. DAUNORUBICIN HCL [Suspect]
     Dosage: 219 MG
     Dates: end: 20090418
  3. ETOPOSIDE [Suspect]
     Dosage: 243 MG
     Dates: end: 20090418

REACTIONS (6)
  - ATRIAL FIBRILLATION [None]
  - HYPOTENSION [None]
  - HYPOXIA [None]
  - LIVER FUNCTION TEST ABNORMAL [None]
  - RENAL FAILURE ACUTE [None]
  - SEPSIS [None]
